FAERS Safety Report 4470814-0 (Version None)
Quarter: 2004Q4

REPORT INFORMATION
  Report Type: 
  Country: None (occurrence: None)
  Receive Date: 20041005
  Receipt Date: 20040922
  Transmission Date: 20050328
  Serious: Yes (Hospitalization, Other)
  Sender: FDA-Public Use
  Company Number: HQWYE340727SEP04

PATIENT
  Age: 63 Year
  Sex: Female

DRUGS (10)
  1. EFFEXOR XR [Suspect]
     Indication: DEPRESSION
     Dosage: SEE IMAGE
     Route: 048
     Dates: start: 20040901, end: 20040901
  2. EFFEXOR XR [Suspect]
     Indication: DEPRESSION
     Dosage: SEE IMAGE
     Route: 048
     Dates: start: 20040913, end: 20040901
  3. EFFEXOR XR [Suspect]
     Indication: DEPRESSION
     Dosage: SEE IMAGE
     Route: 048
     Dates: start: 20040901
  4. SOMA [Concomitant]
  5. VALIUM [Concomitant]
  6. LEVOXYL [Concomitant]
  7. LORTAB [Concomitant]
  8. SONATA [Concomitant]
  9. IBUPROFEN [Concomitant]
  10. SINEQUAN [Concomitant]

REACTIONS (5)
  - AGGRESSION [None]
  - AGITATION [None]
  - CONTUSION [None]
  - CRYING [None]
  - SCREAMING [None]
